FAERS Safety Report 7417837-7 (Version None)
Quarter: 2011Q2

REPORT INFORMATION
  Report Type: 
  Country: None (occurrence: None)
  Receive Date: 20110415
  Receipt Date: 20110406
  Transmission Date: 20111010
  Serious: Yes (Hospitalization)
  Sender: FDA-Public Use
  Company Number: BR-MEDIMMUNE-MEDI-0013066

PATIENT
  Sex: Male

DRUGS (3)
  1. BETAMETHASONE [Concomitant]
     Route: 045
  2. SYNAGIS [Suspect]
     Indication: BRONCHOPULMONARY DYSPLASIA
  3. SYNAGIS [Suspect]
     Dates: start: 20100528, end: 20100827

REACTIONS (4)
  - PNEUMONIA [None]
  - POOR QUALITY SLEEP [None]
  - COUGH [None]
  - FATIGUE [None]
